FAERS Safety Report 22284005 (Version 1)
Quarter: 2023Q2

REPORT INFORMATION
  Report Type: Spontaneous
  Country: US (occurrence: US)
  Receive Date: 20230504
  Receipt Date: 20230504
  Transmission Date: 20230722
  Serious: No
  Sender: FDA-Public Use
  Company Number: US-SA-SAC20230502000232

PATIENT
  Age: 61 Year
  Sex: Female
  Weight: 90.71 kg

DRUGS (3)
  1. DUPIXENT [Suspect]
     Active Substance: DUPILUMAB
     Indication: Multiple sclerosis
     Dosage: 300 MG, QOW
     Route: 058
     Dates: start: 201905
  2. DUPIXENT [Suspect]
     Active Substance: DUPILUMAB
     Indication: Fatigue
  3. COPAXONE [Concomitant]
     Active Substance: GLATIRAMER ACETATE
     Dosage: 400 MG, Q3W
     Route: 058

REACTIONS (5)
  - Fall [Unknown]
  - Foot deformity [Unknown]
  - Gait inability [Unknown]
  - Weight bearing difficulty [Unknown]
  - Product use in unapproved indication [Unknown]

NARRATIVE: CASE EVENT DATE: 20190501
